FAERS Safety Report 8479163 (Version 6)
Quarter: 2012Q4

REPORT INFORMATION
  Report Type: 
  Country: US (occurrence: US)
  Receive Date: 20120327
  Receipt Date: 20121019
  Transmission Date: 20130627
  Serious: Yes (Hospitalization, Disabling, Other)
  Sender: FDA-Public Use
  Company Number: US-009507513-1203USA03295

PATIENT

DRUGS (5)
  1. FOSAMAX [Suspect]
     Indication: OSTEOPOROSIS
     Dosage: 10 mg, UNK
     Route: 048
     Dates: start: 20010109
  2. FOSAMAX [Suspect]
     Dosage: 70 mg, QW
     Route: 048
     Dates: start: 20010214, end: 20100831
  3. FOSAMAX [Suspect]
     Indication: OSTEOPOROSIS
     Dosage: 70 mg, qw
     Route: 048
     Dates: start: 20080325
  4. STUDY DRUG (UNSPECIFIED) [Suspect]
  5. CALCIUM (UNSPECIFIED) [Concomitant]
     Indication: OSTEOPOROSIS
     Dosage: UNK, qd

REACTIONS (38)
  - Hip fracture [Not Recovered/Not Resolved]
  - Osteoporosis [Not Recovered/Not Resolved]
  - Stress fracture [Not Recovered/Not Resolved]
  - Anaemia postoperative [Unknown]
  - Breast cancer [Unknown]
  - Femur fracture [Not Recovered/Not Resolved]
  - Intraductal proliferative breast lesion [Unknown]
  - Mastectomy [Unknown]
  - Hip arthroplasty [Unknown]
  - Low turnover osteopathy [Not Recovered/Not Resolved]
  - Femur fracture [Recovered/Resolved]
  - Periodontitis [Unknown]
  - Hypertension [Unknown]
  - Adverse event [Unknown]
  - Procedural nausea [Unknown]
  - Procedural vomiting [Unknown]
  - Polyarthritis [Unknown]
  - Cardiovascular disorder [Unknown]
  - Osteopenia [Unknown]
  - Gout [Unknown]
  - Electrolyte imbalance [Unknown]
  - Breast disorder [Unknown]
  - Electrocardiogram abnormal [Unknown]
  - Sleep disorder [Unknown]
  - Cardiac aneurysm [Unknown]
  - Cardiac disorder [Unknown]
  - Mitral valve incompetence [Unknown]
  - Chiari network [Unknown]
  - Aortic valve sclerosis [Unknown]
  - Duodenitis [Unknown]
  - Conduction disorder [Unknown]
  - Tricuspid valve incompetence [Unknown]
  - Gastritis erosive [Unknown]
  - Gastric disorder [Unknown]
  - Gastritis [Not Recovered/Not Resolved]
  - Abdominal discomfort [Unknown]
  - Blood potassium decreased [Not Recovered/Not Resolved]
  - Intramedullary rod insertion [Recovered/Resolved]
